FAERS Safety Report 23144861 (Version 3)
Quarter: 2023Q4

REPORT INFORMATION
  Report Type: Spontaneous
  Country: JP (occurrence: JP)
  Receive Date: 20231103
  Receipt Date: 20231103
  Transmission Date: 20240110
  Serious: No
  Sender: FDA-Public Use
  Company Number: JP-SCALL-2023-JP-113818-1

PATIENT
  Age: 73 Year
  Sex: Male

DRUGS (1)
  1. DUTASTERIDE [Suspect]
     Active Substance: DUTASTERIDE
     Dates: start: 201712

REACTIONS (1)
  - Gynaecomastia [Not Recovered/Not Resolved]
